FAERS Safety Report 21792719 (Version 1)
Quarter: 2022Q4

REPORT INFORMATION
  Report Type: Spontaneous
  Country: US (occurrence: US)
  Receive Date: 20221229
  Receipt Date: 20221229
  Transmission Date: 20230112
  Serious: No
  Sender: FDA-Public Use
  Company Number: US-drreddys-SPO/USA/22/0158372

PATIENT
  Age: 21 Year
  Sex: Female

DRUGS (3)
  1. ACCUTANE [Suspect]
     Active Substance: ISOTRETINOIN
     Indication: Acne
     Dosage: RMA ISSUE DATE: 10 MAY 2022 10:47:26 AM, 26 SEPTEMBER 2022 01:02:44 PM
  2. ACCUTANE [Suspect]
     Active Substance: ISOTRETINOIN
     Dosage: RMA ISSUE DATE: 15 JUNE 2022 09:01:16 AM
  3. ACCUTANE [Suspect]
     Active Substance: ISOTRETINOIN
     Dosage: RMA ISSUE DATE: 19 JULY 2022 03:50:28 PM, 23 AUGUST 2022 08:45:40 AM

REACTIONS (1)
  - Treatment noncompliance [Unknown]
